FAERS Safety Report 11262880 (Version 1)
Quarter: 2015Q3

REPORT INFORMATION
  Report Type: Spontaneous
  Country: CA (occurrence: CA)
  Receive Date: 20150710
  Receipt Date: 20150710
  Transmission Date: 20151125
  Serious: Yes (Disabling, Other)
  Sender: FDA-Public Use
  Company Number: CA-HOSPIRA-2799413

PATIENT
  Age: 36 Year
  Sex: Female

DRUGS (3)
  1. CEFAZOLIN [Suspect]
     Active Substance: CEFAZOLIN
     Indication: SKIN INFECTION
     Route: 042
  2. CEFALEXIN [Concomitant]
     Active Substance: CEPHALEXIN
     Indication: PRODUCT USED FOR UNKNOWN INDICATION
     Dosage: NOT REPORTED
  3. CEFTRIAXONE. [Concomitant]
     Active Substance: CEFTRIAXONE
     Indication: PRODUCT USED FOR UNKNOWN INDICATION
     Dosage: NOT REPORTED

REACTIONS (4)
  - Dyspnoea [Recovered/Resolved]
  - Throat irritation [Recovered/Resolved]
  - Erythema [Recovered/Resolved]
  - Chest discomfort [Recovered/Resolved]
